FAERS Safety Report 18041812 (Version 1)
Quarter: 2020Q3

REPORT INFORMATION
  Report Type: Spontaneous
  Country: HR (occurrence: HR)
  Receive Date: 20200720
  Receipt Date: 20200720
  Transmission Date: 20201103
  Serious: Yes (Hospitalization)
  Sender: FDA-Public Use
  Company Number: HR-TEVA-2020-HR-1801334

PATIENT
  Age: 79 Year
  Sex: Male

DRUGS (10)
  1. FLOSIN [Concomitant]
     Active Substance: TAMSULOSIN
     Dosage: 0.4 MG
     Route: 048
  2. DOCETAXEL. [Suspect]
     Active Substance: DOCETAXEL
     Indication: PROSTATE CANCER
     Dosage: 160 MG
     Route: 042
     Dates: start: 202004, end: 202005
  3. ANDOL PRO [Concomitant]
     Dosage: 75 MG
     Route: 048
  4. HUMALOG [Concomitant]
     Active Substance: INSULIN LISPRO
     Indication: DIABETES MELLITUS
     Dosage: 3X8IU
     Route: 058
  5. LIPERTANCE [Concomitant]
     Dosage: DF 20 MG ATORVASTATIN, 10 MG PERINDOPRILARGININE AND 5 MG AMLODIPINE UNIT DOSE :  1 DOSAGE FORMS
     Route: 048
  6. LASIX [Concomitant]
     Active Substance: FUROSEMIDE
     Dosage: 40 MG
     Route: 048
     Dates: start: 20200517
  7. CONTROLOC [Concomitant]
     Active Substance: PANTOPRAZOLE SODIUM
     Indication: ABDOMINAL PAIN UPPER
     Dosage: 40 MG
     Route: 048
     Dates: start: 2020
  8. KALINOR [Concomitant]
     Dosage: DF  2.17 G OF POTASSIUM CITRATE, 2.00 G OF POTASSIUM BICARBONATE AND 2.057 G OF CITRIC ACID, UNIT DO
     Route: 048
  9. TOUJEO [Concomitant]
     Active Substance: INSULIN GLARGINE
     Indication: DIABETES MELLITUS
     Dosage: 20 IU
     Route: 058
     Dates: start: 2014
  10. PRAZINE [Concomitant]
     Dosage: 25 MG
     Route: 048

REACTIONS (9)
  - Dermatitis bullous [Recovering/Resolving]
  - Nocturnal dyspnoea [Unknown]
  - Decreased appetite [Unknown]
  - Hypoglycaemia [Unknown]
  - Thirst [Unknown]
  - Cardiac failure [Recovering/Resolving]
  - Vertigo [Unknown]
  - Peripheral swelling [Unknown]
  - Vomiting [Unknown]

NARRATIVE: CASE EVENT DATE: 2020
